FAERS Safety Report 13973119 (Version 1)
Quarter: 2017Q3

REPORT INFORMATION
  Report Type: Spontaneous
  Country: ZA (occurrence: ZA)
  Receive Date: 20170914
  Receipt Date: 20170914
  Transmission Date: 20171128
  Serious: Yes (Death, Other)
  Sender: FDA-Public Use
  Company Number: ZA-MYLANLABS-2017M1055505

PATIENT
  Age: 89 Year
  Sex: Female

DRUGS (5)
  1. PLENISH-K [Suspect]
     Active Substance: POTASSIUM CHLORIDE
     Indication: MINERAL SUPPLEMENTATION
     Dosage: 600 MG, UNK
     Route: 048
  2. BILOCOR [Suspect]
     Active Substance: BISOPROLOL FUMARATE
     Indication: HYPERTENSION
     Dosage: 5 MG, UNK
     Route: 048
  3. CIPALAT [Suspect]
     Active Substance: NIFEDIPINE
     Indication: HYPERTENSION
     Dosage: 20 MG, UNK
     Route: 048
  4. MIZART [Suspect]
     Active Substance: TELMISARTAN
     Indication: HYPERTENSION
     Dosage: 40 MG, UNK
     Route: 048
  5. SPIRACTIN                          /00006201/ [Suspect]
     Active Substance: SPIRONOLACTONE
     Indication: DIURETIC THERAPY
     Dosage: 25 MG, UNK
     Route: 048

REACTIONS (1)
  - Death [Fatal]
